FAERS Safety Report 8211640-6 (Version None)
Quarter: 2012Q1

REPORT INFORMATION
  Report Type: 
  Country: None (occurrence: None)
  Receive Date: 20120315
  Receipt Date: 20120302
  Transmission Date: 20120608
  Serious: Yes (Other)
  Sender: FDA-Public Use
  Company Number: AU-PFIZER INC-2012063467

PATIENT
  Age: 50 Year
  Sex: Male

DRUGS (10)
  1. CIPROFLOXACIN HCL [Interacting]
     Dosage: UNK
  2. FLUOXETINE [Suspect]
     Indication: EMOTIONAL DISTRESS
  3. DIAZEPAM [Suspect]
     Dosage: UNK
  4. METOCLOPRAMIDE [Suspect]
  5. VENLAFAXINE HCL [Interacting]
     Indication: EMOTIONAL DISTRESS
     Dosage: 300 MG, 1X/DAY
  6. ZOPICLONE [Suspect]
     Dosage: UNK
  7. AMITRIPTYLINE HCL [Suspect]
     Indication: EMOTIONAL DISTRESS
  8. VITAMIN TAB [Suspect]
     Dosage: UNK
  9. VALPROATE SODIUM [Suspect]
     Dosage: 1000 MG, 1X/DAY
  10. ZOLPIDEM [Interacting]
     Dosage: 10 MG, UNK

REACTIONS (5)
  - DRUG INTERACTION [None]
  - SEROTONIN SYNDROME [None]
  - AKATHISIA [None]
  - SOMNAMBULISM [None]
  - HOMICIDE [None]
